FAERS Safety Report 5947416-X (Version None)
Quarter: 2008Q4

REPORT INFORMATION
  Report Type: 
  Country: None (occurrence: None)
  Receive Date: 20081110
  Receipt Date: 20081024
  Transmission Date: 20090506
  Serious: Yes (Hospitalization)
  Sender: FDA-Public Use
  Company Number: PHHY2008JP26639

PATIENT
  Age: 58 Year
  Sex: Female

DRUGS (4)
  1. LUDIOMIL [Suspect]
     Indication: DEPRESSION
     Dosage: 60 MG
     Route: 048
  2. LUDIOMIL [Suspect]
     Dosage: 75 MG
     Route: 048
  3. LUDIOMIL [Suspect]
     Dosage: 150 MG
     Route: 048
  4. DEPAKENE [Concomitant]

REACTIONS (1)
  - CONVULSION [None]
